FAERS Safety Report 6313868-9 (Version None)
Quarter: 2009Q3

REPORT INFORMATION
  Report Type: 
  Country: None (occurrence: None)
  Receive Date: 20090817
  Receipt Date: 20090817
  Transmission Date: 20100115
  Serious: Yes (Hospitalization)
  Sender: FDA-Public Use
  Company Number: None

PATIENT
  Age: 60 Year
  Sex: Female
  Weight: 86.1834 kg

DRUGS (3)
  1. CIPROFLOXACIN [Suspect]
     Indication: TOOTH ABSCESS
     Dosage: 500 MG BID PO
     Route: 048
     Dates: start: 20070313, end: 20070318
  2. PREDNISONE TAB [Suspect]
     Indication: SWELLING
     Dosage: 20 MG TID PO
     Route: 048
     Dates: start: 20070313, end: 20090318
  3. PREDNISONE TAB [Suspect]
     Indication: URTICARIA
     Dosage: 20 MG TID PO
     Route: 048
     Dates: start: 20070313, end: 20090318

REACTIONS (3)
  - PAIN IN EXTREMITY [None]
  - TENDON RUPTURE [None]
  - TENDONITIS [None]
